FAERS Safety Report 9721963 (Version 1)
Quarter: 2013Q4

REPORT INFORMATION
  Report Type: Spontaneous
  Country: US (occurrence: US)
  Receive Date: 20131202
  Receipt Date: 20131202
  Transmission Date: 20140711
  Serious: Yes (Death, Hospitalization)
  Sender: FDA-Public Use
  Company Number: US-INDICUS PHARMA-000188

PATIENT
  Age: 27 Year
  Sex: Male

DRUGS (4)
  1. VERAPAMIL [Suspect]
     Route: 048
  2. CITALOPRAM [Suspect]
     Route: 048
  3. ZOLPIDEM [Suspect]
     Route: 048
  4. METFORMIN HYDROCHLORIDE [Suspect]
     Route: 048

REACTIONS (2)
  - Exposure via ingestion [Fatal]
  - Completed suicide [Fatal]
